FAERS Safety Report 11644911 (Version 1)
Quarter: 2015Q4

REPORT INFORMATION
  Report Type: Spontaneous
  Country: IT (occurrence: IT)
  Receive Date: 20151020
  Receipt Date: 20151020
  Transmission Date: 20160304
  Serious: Yes (Hospitalization)
  Sender: FDA-Public Use
  Company Number: IT-AUROBINDO-AUR-APL-2015-09309

PATIENT
  Age: 88 Year
  Sex: Male

DRUGS (3)
  1. AMLODIPINE [Concomitant]
     Active Substance: AMLODIPINE BESYLATE
     Indication: PRODUCT USED FOR UNKNOWN INDICATION
     Route: 065
  2. BISOPROLOL AUROBINDO FILM-COATED TABLETS [Suspect]
     Active Substance: BISOPROLOL
     Indication: HYPERTENSION
     Dosage: DAILY
     Route: 048
  3. CARDIOASPIRIN [Suspect]
     Active Substance: ASPIRIN
     Indication: PRODUCT USED FOR UNKNOWN INDICATION
     Dosage: 100 MG DAILY
     Route: 048

REACTIONS (8)
  - Syncope [Recovering/Resolving]
  - Blood glucose increased [Recovering/Resolving]
  - Haematocrit decreased [Recovering/Resolving]
  - Haemoglobin decreased [Recovering/Resolving]
  - Head injury [None]
  - Blood creatinine increased [Recovering/Resolving]
  - Red blood cell count decreased [Recovering/Resolving]
  - Loss of consciousness [Recovering/Resolving]

NARRATIVE: CASE EVENT DATE: 20150716
